FAERS Safety Report 7715724-8 (Version None)
Quarter: 2011Q3

REPORT INFORMATION
  Report Type: 
  Country: None (occurrence: None)
  Receive Date: 20110829
  Receipt Date: 20110823
  Transmission Date: 20111222
  Serious: Yes (Other)
  Sender: FDA-Public Use
  Company Number: US-PFIZER INC-2011176757

PATIENT
  Sex: Female

DRUGS (8)
  1. GEODON [Suspect]
     Dosage: 20 MG, 2X/DAY
     Route: 048
     Dates: start: 20110712, end: 20110720
  2. ZOLOFT [Concomitant]
     Dosage: 100 MG, 1X/DAY
     Dates: start: 20100812
  3. LOMOTIL [Concomitant]
     Dosage: 400 MG, 1X/DAY
     Dates: start: 20100802
  4. LUNESTA [Concomitant]
     Dosage: 2 MG, AS NEEDED
     Route: 060
     Dates: start: 20110720
  5. GEODON [Suspect]
     Dosage: 40 MG, 2X/DAY
     Route: 048
     Dates: start: 20110720, end: 20110725
  6. CALCIUM [Concomitant]
     Dosage: ONE, TWICE A DAY
     Dates: start: 20110712
  7. CLONAZEPAM [Concomitant]
     Dosage: 0.5 MG, UNK
     Dates: start: 20100812
  8. VITAMIN D [Concomitant]
     Dosage: ONE, TWICE A DAY
     Dates: start: 20110712

REACTIONS (9)
  - LIP SWELLING [None]
  - DRY MOUTH [None]
  - ORAL PAIN [None]
  - TREMOR [None]
  - DIARRHOEA [None]
  - PRURITUS [None]
  - ORAL MUCOSAL ERYTHEMA [None]
  - MEMORY IMPAIRMENT [None]
  - CHILLS [None]
